FAERS Safety Report 7473974-2 (Version None)
Quarter: 2011Q2

REPORT INFORMATION
  Report Type: 
  Country: None (occurrence: None)
  Receive Date: 20110511
  Receipt Date: 20110506
  Transmission Date: 20111010
  Serious: Yes (Hospitalization)
  Sender: FDA-Public Use
  Company Number: DE-PFIZER INC-2011066476

PATIENT
  Age: 89 Year
  Sex: Female

DRUGS (6)
  1. METOPROLOL TARTRATE [Interacting]
     Indication: CORONARY ARTERY DISEASE
     Dosage: 50 MG, 1X/DAY
     Route: 048
     Dates: start: 20060101, end: 20110212
  2. IRBESARTAN + HYDROCHLOROTHIAZIDE [Interacting]
     Indication: CORONARY ARTERY DISEASE
     Dosage: 12.5 MG HYDROCHLOROTHIAZIDE/300 MG IRBESARTAN
     Route: 048
     Dates: start: 20060101
  3. PLAVIX [Concomitant]
     Indication: CORONARY ARTERY DISEASE
     Dosage: 75 MG, 1X/DAY
     Route: 048
     Dates: start: 20060101
  4. AMLODIPINE BESYLATE [Interacting]
     Indication: HYPERTENSION
     Dosage: 5 MG, 1X/DAY
     Route: 048
     Dates: start: 20060101
  5. NITROGLYCERIN [Suspect]
     Indication: CORONARY ARTERY DISEASE
     Dosage: 0.4 MG, UNK
     Route: 060
     Dates: start: 20060101
  6. SIMVAHEXAL [Concomitant]
     Indication: HYPERLIPIDAEMIA
     Dosage: 20 MG, 1X/DAY (HALF OF 40 MG TABLET)

REACTIONS (2)
  - DRUG INTERACTION [None]
  - SYNCOPE [None]
